FAERS Safety Report 5889892-7 (Version None)
Quarter: 2008Q3

REPORT INFORMATION
  Report Type: 
  Country: None (occurrence: None)
  Receive Date: 20080919
  Receipt Date: 20080910
  Transmission Date: 20090109
  Serious: Yes (Death, Other)
  Sender: FDA-Public Use
  Company Number: PHBS2008US05739

PATIENT
  Age: 29 Year
  Sex: Female

DRUGS (4)
  1. OXYTOCIN [Suspect]
     Indication: ABORTION INDUCED
     Dosage: 0.5 CC
     Route: 030
  2. OXYTOCIN [Suspect]
     Dosage: 1 CC
     Route: 042
  3. MEPIVACAINE HCL [Concomitant]
     Indication: ABORTION INDUCED
  4. PENTOBARBITAL CAP [Suspect]
     Indication: ABORTION INDUCED
     Dosage: 100 MG
     Route: 030

REACTIONS (17)
  - ACUTE MYOCARDIAL INFARCTION [None]
  - CARDIOPULMONARY BYPASS [None]
  - CARDIOVERSION [None]
  - CYANOSIS [None]
  - FEELING HOT [None]
  - HEART VALVE REPLACEMENT [None]
  - HEPATIC HAEMATOMA [None]
  - HYPOTENSION [None]
  - LEFT VENTRICULAR HYPERTROPHY [None]
  - MUSCLE RIGIDITY [None]
  - MYOCARDIAL FIBROSIS [None]
  - PERITONEAL HAEMORRHAGE [None]
  - PULMONARY OEDEMA [None]
  - PULSE ABSENT [None]
  - RESUSCITATION [None]
  - UTERINE ENLARGEMENT [None]
  - VENTRICULAR FIBRILLATION [None]
